FAERS Safety Report 22177330 (Version 1)
Quarter: 2023Q2

REPORT INFORMATION
  Report Type: Spontaneous
  Country: US (occurrence: None)
  Receive Date: 20230405
  Receipt Date: 20230405
  Transmission Date: 20230722
  Serious: Yes (Other)
  Sender: FDA-Public Use
  Company Number: None

PATIENT
  Age: 71 Year
  Sex: Male
  Weight: 142 kg

DRUGS (2)
  1. CEFIDEROCOL [Suspect]
     Active Substance: CEFIDEROCOL
     Indication: Osteomyelitis
     Dosage: FREQUENCY : 3 TIMES A DAY;?
     Route: 042
     Dates: start: 20230303, end: 20230403
  2. ERAVACYCLINE [Suspect]
     Active Substance: ERAVACYCLINE
     Indication: Osteomyelitis
     Dosage: FREQUENCY : TWICE A DAY;?
     Route: 042
     Dates: start: 20230306, end: 20230403

REACTIONS (6)
  - Thrombocytopenia [None]
  - Liver injury [None]
  - Diarrhoea [None]
  - Vomiting [None]
  - Rash [None]
  - Rash [None]

NARRATIVE: CASE EVENT DATE: 20230403
